FAERS Safety Report 20652625 (Version 1)
Quarter: 2022Q1

REPORT INFORMATION
  Report Type: Spontaneous
  Country: FR (occurrence: FR)
  Receive Date: 20220330
  Receipt Date: 20220330
  Transmission Date: 20220423
  Serious: Yes (Life-Threatening)
  Sender: FDA-Public Use
  Company Number: None

PATIENT
  Age: 86 Year
  Sex: Female

DRUGS (1)
  1. HUMALOG [Suspect]
     Active Substance: INSULIN LISPRO
     Indication: Product used for unknown indication
     Dosage: UNK UNK, UNKNOWN
     Route: 065
     Dates: start: 20220301

REACTIONS (4)
  - Hypoglycaemia [Recovered/Resolved]
  - Accidental overdose [Recovered/Resolved]
  - Product dispensing error [Recovered/Resolved]
  - Device monitoring procedure not performed [Recovered/Resolved]

NARRATIVE: CASE EVENT DATE: 20220301
